FAERS Safety Report 8853152 (Version 2)
Quarter: 2012Q4

REPORT INFORMATION
  Report Type: 
  Country: AT (occurrence: AT)
  Receive Date: 20121022
  Receipt Date: 20121023
  Transmission Date: 20130627
  Serious: Yes (Life-Threatening, Hospitalization)
  Sender: FDA-Public Use
  Company Number: AT-AMGEN-AUTSP2012065453

PATIENT
  Age: 75 Year
  Sex: Female
  Weight: 62.1 kg

DRUGS (1)
  1. PROLIA [Suspect]
     Indication: OSTEOPOROSIS
     Dosage: 60 mg, UNK
     Route: 058
     Dates: start: 20120824

REACTIONS (4)
  - Syncope [Not Recovered/Not Resolved]
  - Tetany [Not Recovered/Not Resolved]
  - Depressed level of consciousness [Not Recovered/Not Resolved]
  - Hypocalcaemia [Not Recovered/Not Resolved]
